FAERS Safety Report 7449956-3 (Version None)
Quarter: 2011Q1

REPORT INFORMATION
  Report Type: 
  Country: None (occurrence: None)
  Receive Date: 20110302
  Receipt Date: 20101206
  Transmission Date: 20110831
  Serious: No
  Sender: FDA-Public Use
  Company Number: 019188

PATIENT
  Sex: Female
  Weight: 77.1 kg

DRUGS (9)
  1. PREDNISONE [Suspect]
     Indication: CROHN'S DISEASE
     Dosage: 30 MG ORAL
     Route: 048
     Dates: start: 20100101
  2. METHOTREXATE [Concomitant]
  3. SYNTHROID [Concomitant]
  4. CALCIUM W/VITAMIN D NOS [Concomitant]
  5. FOLIC ACID [Concomitant]
  6. ALENDRONATE SODIUM [Concomitant]
  7. WELLBUTRIN [Concomitant]
  8. CIMZIA [Suspect]
     Indication: CROHN'S DISEASE
     Dosage: 400 MG/ML SUBCUTANEOUS
     Route: 058
     Dates: start: 20100706
  9. LOSARTAN POTASSIUM AND HYDROCHLOROTHIAZIDE [Concomitant]

REACTIONS (6)
  - FAT TISSUE INCREASED [None]
  - EYES SUNKEN [None]
  - WEIGHT INCREASED [None]
  - APPETITE DISORDER [None]
  - EYELID OEDEMA [None]
  - LOCAL SWELLING [None]
